FAERS Safety Report 6675814-8 (Version None)
Quarter: 2010Q2

REPORT INFORMATION
  Report Type: 
  Country: None (occurrence: None)
  Receive Date: 20100412
  Receipt Date: 20100401
  Transmission Date: 20101027
  Serious: Yes (Hospitalization)
  Sender: FDA-Public Use
  Company Number: US-BIOGENIDEC-2009BI025587

PATIENT
  Age: 55 Year
  Sex: Female

DRUGS (1)
  1. AVONEX [Suspect]
     Indication: MULTIPLE SCLEROSIS
     Route: 030
     Dates: start: 20030512

REACTIONS (7)
  - BRAIN INJURY [None]
  - CEREBROVASCULAR ACCIDENT [None]
  - GASTRIC CANCER [None]
  - GASTRIC CYST [None]
  - HEART INJURY [None]
  - OVARIAN CANCER [None]
  - OVARIAN CYST [None]
